FAERS Safety Report 15389929 (Version 4)
Quarter: 2018Q3

REPORT INFORMATION
  Report Type: Report from Study
  Country: CA (occurrence: CA)
  Receive Date: 20180917
  Receipt Date: 20180927
  Transmission Date: 20181010
  Serious: No
  Sender: FDA-Public Use
  Company Number: CA-ROCHE-2185625

PATIENT
  Sex: Female

DRUGS (2)
  1. OCREVUS [Suspect]
     Active Substance: OCRELIZUMAB
     Indication: RELAPSING-REMITTING MULTIPLE SCLEROSIS
     Dosage: 300 MG DAY 0 AND 14, THEN 600 MG EVERY 6 MONTHS
     Route: 042
     Dates: start: 20180305
  2. MONUROL [Concomitant]
     Active Substance: FOSFOMYCIN TROMETHAMINE
     Route: 065
     Dates: start: 20180906

REACTIONS (1)
  - Cystitis [Recovering/Resolving]
